FAERS Safety Report 6245367-7 (Version None)
Quarter: 2009Q2

REPORT INFORMATION
  Report Type: 
  Country: None (occurrence: None)
  Receive Date: 20090625
  Receipt Date: 20090615
  Transmission Date: 20091009
  Serious: Yes (Other)
  Sender: FDA-Public Use
  Company Number: JP-ALLERGAN-0908474US

PATIENT

DRUGS (2)
  1. BOTOX [Suspect]
     Indication: BLEPHAROSPASM
     Dosage: UNK, UNK
     Route: 030
     Dates: start: 20081024, end: 20081024
  2. BOTOX [Suspect]
     Dosage: UNK, UNK
     Route: 030
     Dates: start: 20090206, end: 20090206

REACTIONS (1)
  - ULCERATIVE KERATITIS [None]
